FAERS Safety Report 9681670 (Version 2)
Quarter: 2013Q4

REPORT INFORMATION
  Report Type: Report from Study
  Country: US (occurrence: US)
  Receive Date: 20131111
  Receipt Date: 20131111
  Transmission Date: 20140711
  Serious: No
  Sender: FDA-Public Use
  Company Number: PHEH2011US013408

PATIENT
  Sex: Female

DRUGS (22)
  1. TASIGNA [Suspect]
     Indication: CHRONIC MYELOID LEUKAEMIA
     Dosage: 300 MG, BID
     Route: 048
     Dates: start: 20110805, end: 20111206
  2. DIOVAN [Concomitant]
  3. GLUCOSAMINA + CONDROITINA [Concomitant]
  4. PRAVASTATIN [Concomitant]
     Dosage: 20 MG, QHS
  5. AMLODIPINE [Concomitant]
  6. ASPIRIN [Concomitant]
  7. ATENOLOL [Concomitant]
     Dosage: 25 MG, QD
     Route: 048
  8. CITRACAL [Concomitant]
     Dosage: 315 MG, QD
     Route: 048
  9. CYANOCOBALAMINE [Concomitant]
  10. FISH OIL [Concomitant]
     Dosage: 1000 MG, QD
     Route: 048
  11. FOLIC ACID [Concomitant]
  12. GLUCOSAMINE [Concomitant]
  13. GLYBURIDE [Concomitant]
     Dosage: 2.5 MG, PRN
     Route: 048
  14. LEVOTHYROXINE [Concomitant]
  15. LOSARTAN POTASSIUM [Concomitant]
  16. MAGNESIUM GLYCINATE [Concomitant]
  17. METAMUCIL [Concomitant]
  18. METFORMIN [Concomitant]
     Dosage: 850 MG, TID
     Route: 048
  19. MULTI VITAMIN + MINERAL [Concomitant]
     Route: 048
  20. SPRYCEL//DASATINIB [Concomitant]
     Dosage: 1 DF, QD
     Route: 048
  21. VITAMIIN C [Concomitant]
     Dosage: 500 MG, QD
     Route: 048
  22. VITAMIN D3 [Concomitant]
     Dosage: 2000 U, QD
     Route: 048

REACTIONS (3)
  - Fatigue [Not Recovered/Not Resolved]
  - Pruritus [Not Recovered/Not Resolved]
  - Rhinorrhoea [Not Recovered/Not Resolved]
